FAERS Safety Report 23658787 (Version 1)
Quarter: 2024Q1

REPORT INFORMATION
  Report Type: Report from Study
  Country: US (occurrence: US)
  Receive Date: 20240321
  Receipt Date: 20240321
  Transmission Date: 20240409
  Serious: Yes (Other)
  Sender: FDA-Public Use
  Company Number: US-UCBSA-2023030719

PATIENT
  Sex: Female

DRUGS (14)
  1. BRIVARACETAM [Suspect]
     Active Substance: BRIVARACETAM
     Indication: Epilepsy
     Dosage: 25 MILLIGRAM, 1 TAB ORALLY, 2X/DAY (BID)
     Route: 048
  2. BRIVARACETAM [Suspect]
     Active Substance: BRIVARACETAM
     Dosage: 100 MILLIGRAM, 2X/DAY (BID) (AS DIRECTED BY PHYSICIAN)
     Route: 048
  3. NAYZILAM [Suspect]
     Active Substance: MIDAZOLAM
     Indication: Seizure cluster
     Dosage: 5 MG/0.1 ML SOLUTION AS DIRECTED NASALLY ONE SPRAY INTRANASALLY AT ONSET OF CLUSTER SEIZURE MAY REPE
     Route: 045
  4. VIMPAT [Suspect]
     Active Substance: LACOSAMIDE
     Indication: Epilepsy
     Dosage: 200 MILLIGRAM, 1 TAB ORALLY,  2X/DAY (BID)
     Route: 048
  5. HYDROCHLOROTHIAZIDE [Concomitant]
     Active Substance: HYDROCHLOROTHIAZIDE
     Indication: Product used for unknown indication
     Dosage: 12.5 MILLIGRAM, 1 CAPSULE IN MORNING, ONCE DAILY (QD)
     Route: 048
  6. LOSARTAN [Concomitant]
     Active Substance: LOSARTAN
     Indication: Product used for unknown indication
     Dosage: 50 MILLIGRAM, 2X/DAY (BID), AS DIRECTED
     Route: 048
  7. ALPRAZOLAM [Concomitant]
     Active Substance: ALPRAZOLAM
     Indication: Product used for unknown indication
     Dosage: 0.5 MILLIGRAM, 2X/DAY (BID), AS DIRECTED, PRN
     Route: 048
  8. DICLOFENAC SODIUM [Concomitant]
     Active Substance: DICLOFENAC\DICLOFENAC SODIUM
     Indication: Product used for unknown indication
     Dosage: 50 MILLIGRAM, 3X/DAY (TID), DELAYED RELEASE AS DIRECTED
     Route: 048
  9. GABAPENTIN [Concomitant]
     Active Substance: GABAPENTIN
     Indication: Pain
     Dosage: 300 MILLIGRAM, ONCE DAILY (QD), 1 CAP ORALLY BEDTIME
     Route: 048
  10. LEXAPRO [Concomitant]
     Active Substance: ESCITALOPRAM OXALATE
     Indication: Product used for unknown indication
     Dosage: 20 MILLIGRAM, 1 TABLET ORALLY AT BEDTIME
     Route: 048
  11. VERAPAMIL HCL [Concomitant]
     Active Substance: VERAPAMIL HYDROCHLORIDE
     Indication: Product used for unknown indication
     Dosage: 80 MILLIGRAM, TAKE ONE TAB BY MOUTH, ONCE A DAY FOR 90 DAYS
     Route: 048
  12. DULOXETINE HYDROCHLORIDE [Concomitant]
     Active Substance: DULOXETINE HYDROCHLORIDE
     Indication: Product used for unknown indication
     Dosage: 60 MILLIGRAM (TAKE 1 CAPSULE BY MOUTH EVERY DAY)
     Route: 048
  13. PROPRANOLOL HYDROCHLORIDE [Concomitant]
     Active Substance: PROPRANOLOL HYDROCHLORIDE
     Indication: Product used for unknown indication
     Dosage: 80 MILLIGRAM (I TABLET BY MOUTH EVERY NIGHT AT BEDTIME)
     Route: 048
  14. BUTALBITAL [Concomitant]
     Active Substance: BUTALBITAL
     Indication: Migraine
     Dosage: UNK
     Route: 048

REACTIONS (12)
  - Multiple sclerosis [Unknown]
  - Visual impairment [Unknown]
  - Muscle twitching [Unknown]
  - Confusional state [Unknown]
  - Dysarthria [Unknown]
  - Feeling drunk [Unknown]
  - Gait disturbance [Unknown]
  - Dizziness [Unknown]
  - Feeling abnormal [Unknown]
  - Disorientation [Unknown]
  - Stomatitis [Unknown]
  - Tremor [Unknown]
